FAERS Safety Report 20961803 (Version 2)
Quarter: 2022Q3

REPORT INFORMATION
  Report Type: Spontaneous
  Country: GB (occurrence: GB)
  Receive Date: 20220615
  Receipt Date: 20220704
  Transmission Date: 20221026
  Serious: Yes (Hospitalization, Other)
  Sender: FDA-Public Use
  Company Number: None

PATIENT
  Sex: Male

DRUGS (6)
  1. APIXABAN [Suspect]
     Active Substance: APIXABAN
     Indication: Atrial flutter
     Dosage: 2.5 MG BD
     Dates: start: 20220601, end: 20220607
  2. ASPIRIN [Suspect]
     Active Substance: ASPIRIN
     Indication: Peripheral vascular disorder
     Dosage: 75 MG OD
  3. CILOSTAZOL [Suspect]
     Active Substance: CILOSTAZOL
     Indication: Adverse drug reaction
     Dosage: 100MG BD
  4. BISOPROLOL [Concomitant]
     Active Substance: BISOPROLOL
     Indication: Ventricular tachycardia
  5. FUROSEMIDE [Concomitant]
     Active Substance: FUROSEMIDE
     Indication: Cardiac failure
  6. TAMSULOSIN [Concomitant]
     Active Substance: TAMSULOSIN
     Indication: Benign prostatic hyperplasia

REACTIONS (3)
  - Haemorrhagic stroke [Recovering/Resolving]
  - Contraindicated product administered [Unknown]
  - Ventricular arrhythmia [Unknown]

NARRATIVE: CASE EVENT DATE: 20220607
